FAERS Safety Report 10086259 (Version 2)
Quarter: 2014Q2

REPORT INFORMATION
  Report Type: Report from Study
  Country: MY (occurrence: MY)
  Receive Date: 20140418
  Receipt Date: 20140610
  Transmission Date: 20141212
  Serious: Yes (Death)
  Sender: FDA-Public Use
  Company Number: PHHY2014MY047464

PATIENT
  Sex: Female

DRUGS (8)
  1. GLIVEC [Suspect]
     Indication: CHRONIC MYELOID LEUKAEMIA
     Dosage: 300 MG
  2. METFORMIN [Concomitant]
     Dosage: UNK UKN, UNK
  3. GLICLAZIDE [Concomitant]
     Dosage: UNK UKN, UNK
  4. DILTIAZEM [Concomitant]
     Dosage: UNK UKN, UNK
  5. PERINDOPRIL [Concomitant]
     Dosage: UNK UKN, UNK
  6. LOVASTATIN [Concomitant]
     Dosage: UNK UKN, UNK
  7. HYDROCHLOROTHIAZIDE [Concomitant]
     Dosage: UNK UKN, UNK
  8. ASPIRIN [Concomitant]
     Dosage: UNK UKN, UNK

REACTIONS (2)
  - Nausea [Fatal]
  - Vomiting [Fatal]
